FAERS Safety Report 15733133 (Version 1)
Quarter: 2018Q4

REPORT INFORMATION
  Report Type: Spontaneous
  Country: HR (occurrence: HR)
  Receive Date: 20181218
  Receipt Date: 20181218
  Transmission Date: 20190205
  Serious: Yes (Other)
  Sender: FDA-Public Use
  Company Number: HR-TEVA-2018-HR-988060

PATIENT
  Age: 6 Year
  Sex: Female

DRUGS (1)
  1. RINOLAN SIRUP [Suspect]
     Active Substance: LORATADINE
     Dosage: 10 MILLIGRAM DAILY;
     Route: 048
     Dates: start: 20180929, end: 20180929

REACTIONS (2)
  - Rash [Unknown]
  - Arrhythmia [Unknown]

NARRATIVE: CASE EVENT DATE: 20180929
